FAERS Safety Report 8911686 (Version 2)
Quarter: 2012Q4

REPORT INFORMATION
  Report Type: 
  Country: DE (occurrence: AE)
  Receive Date: 20121113
  Receipt Date: 20121218
  Transmission Date: 20130627
  Serious: Yes (Other)
  Sender: FDA-Public Use
  Company Number: 2012SP003464

PATIENT
  Age: 14 Year
  Sex: Female
  Weight: 50 kg

DRUGS (1)
  1. ALVESCO [Suspect]
     Indication: COUGH
     Route: 055

REACTIONS (4)
  - Throat irritation [Recovered/Resolved]
  - Dyspnoea [Recovered/Resolved]
  - Rash [Recovered/Resolved]
  - Cough [Recovered/Resolved]
